FAERS Safety Report 9819363 (Version 1)
Quarter: 2014Q1

REPORT INFORMATION
  Report Type: Spontaneous
  Country: GR (occurrence: GR)
  Receive Date: 20140115
  Receipt Date: 20140115
  Transmission Date: 20141002
  Serious: Yes (Other)
  Sender: FDA-Public Use
  Company Number: GR-PFIZER INC-2014011095

PATIENT
  Age: 85 Year
  Sex: Male

DRUGS (2)
  1. EPANUTIN [Suspect]
     Indication: EPILEPSY
     Dosage: 17 ML, 3X/DAY
     Route: 048
     Dates: start: 201401
  2. VASCASE PLUS [Concomitant]
     Indication: HYPERTENSION

REACTIONS (6)
  - Hallucination [Not Recovered/Not Resolved]
  - Poor quality sleep [Not Recovered/Not Resolved]
  - Agitation [Not Recovered/Not Resolved]
  - Headache [Not Recovered/Not Resolved]
  - Dizziness [Not Recovered/Not Resolved]
  - Confusional state [Unknown]
